FAERS Safety Report 19965695 (Version 1)
Quarter: 2021Q4

REPORT INFORMATION
  Report Type: Spontaneous
  Country: US (occurrence: US)
  Receive Date: 20211018
  Receipt Date: 20211018
  Transmission Date: 20220304
  Serious: No
  Sender: FDA-Public Use
  Company Number: US-PFIZER INC-2021502310

PATIENT
  Age: 52 Year
  Sex: Female
  Weight: 71.66 kg

DRUGS (17)
  1. IBRANCE [Suspect]
     Active Substance: PALBOCICLIB
     Indication: Breast cancer female
     Dosage: 125 MG, CYCLIC (DAILY FOR 21 DAYS)
     Route: 048
     Dates: start: 20210312
  2. PRILOSEC [Concomitant]
     Active Substance: OMEPRAZOLE MAGNESIUM
     Dosage: 20 MG, UNK
  3. ALEVE [Concomitant]
     Active Substance: NAPROXEN SODIUM
     Dosage: 220 MG, UNK
  4. ADVIL [Concomitant]
     Active Substance: IBUPROFEN
     Dosage: 200 MG, UNK
  5. CALCIUM CARBONATE\SODIUM ALGINATE [Concomitant]
     Active Substance: CALCIUM CARBONATE\SODIUM ALGINATE
     Dosage: UNK
  6. GAS-X [Concomitant]
     Active Substance: DIMETHICONE
     Dosage: 125 MG, UNK
  7. FIBER LAX [Concomitant]
     Active Substance: CALCIUM POLYCARBOPHIL
     Dosage: 625 MG, UNK
  8. PROAIR HFA [Concomitant]
     Active Substance: ALBUTEROL SULFATE
     Dosage: 90 UG, UNK
  9. DULERA [Concomitant]
     Active Substance: FORMOTEROL FUMARATE DIHYDRATE\MOMETASONE FUROATE
     Dosage: 105 MG
  10. MELATONIN [Concomitant]
     Active Substance: MELATONIN
     Dosage: UNK
  11. FULVESTRANT [Concomitant]
     Active Substance: FULVESTRANT
     Dosage: 250 MG, UNK
  12. VENLAFAXINE HCL [Concomitant]
     Active Substance: VENLAFAXINE HYDROCHLORIDE
     Dosage: 100 MG, UNK
  13. ACYCLOVIR [Concomitant]
     Active Substance: ACYCLOVIR
     Dosage: UNK
  14. GABAPENTIN [Concomitant]
     Active Substance: GABAPENTIN
     Dosage: UNK
  15. EZETIMIBE [Concomitant]
     Active Substance: EZETIMIBE
     Dosage: 10 MG, UNK
  16. SINGULAIR [Concomitant]
     Active Substance: MONTELUKAST SODIUM
     Dosage: 10 MG, UNK
  17. BIOTIN [Concomitant]
     Active Substance: BIOTIN
     Dosage: UNK

REACTIONS (7)
  - Food craving [Unknown]
  - Flatulence [Unknown]
  - Abdominal distension [Unknown]
  - Fatigue [Unknown]
  - Headache [Unknown]
  - Tinnitus [Unknown]
  - Insomnia [Unknown]
